FAERS Safety Report 8376176-0 (Version None)
Quarter: 2012Q2

REPORT INFORMATION
  Report Type: 
  Country: None (occurrence: None)
  Receive Date: 20120522
  Receipt Date: 20120507
  Transmission Date: 20120825
  Serious: Yes (Death)
  Sender: FDA-Public Use
  Company Number: ES-ASTELLAS-2012EU003509

PATIENT
  Age: 29 Year
  Sex: Female

DRUGS (6)
  1. MICAFUNGIN [Suspect]
     Indication: LUNG TRANSPLANT
     Dosage: 100 MG, UID/QD
     Route: 042
  2. BASILIXIMAB [Concomitant]
     Indication: LUNG TRANSPLANT
     Dosage: UNK
     Route: 065
  3. TACROLIMUS [Concomitant]
     Indication: LUNG TRANSPLANT
     Dosage: UNK
     Route: 065
  4. AMPHOTERICIN B [Suspect]
     Indication: LUNG TRANSPLANT
     Dosage: 250 MG, UID/QD
     Route: 042
  5. MYCOPHENOLATE MOFETIL [Concomitant]
     Indication: LUNG TRANSPLANT
     Dosage: UNK
     Route: 065
  6. CORTICOSTEROID NOS [Concomitant]
     Indication: LUNG TRANSPLANT
     Dosage: 750 MG, UNKNOWN/D
     Route: 065

REACTIONS (2)
  - DRUG INEFFECTIVE [None]
  - CANDIDA SEPSIS [None]
